FAERS Safety Report 7308039-3 (Version None)
Quarter: 2011Q1

REPORT INFORMATION
  Report Type: 
  Country: None (occurrence: None)
  Receive Date: 20110223
  Receipt Date: 20100817
  Transmission Date: 20110831
  Serious: Yes (Hospitalization)
  Sender: FDA-Public Use
  Company Number: US-BAYER-200935878NA

PATIENT
  Sex: Female
  Weight: 52.154 kg

DRUGS (7)
  1. YASMIN [Suspect]
     Indication: PREMENSTRUAL SYNDROME
     Route: 048
     Dates: start: 20050101, end: 20080101
  2. CEPHALEXIN [Concomitant]
  3. ZOLOFT [Concomitant]
  4. OCELLA [Suspect]
     Indication: PREMENSTRUAL SYNDROME
     Route: 048
     Dates: start: 20050101, end: 20080101
  5. UNCODEABLE ^UNCLASSIFIABLE^ [Concomitant]
  6. NEXIUM [Concomitant]
  7. YAZ [Suspect]
     Indication: PREMENSTRUAL SYNDROME
     Route: 048
     Dates: start: 20050101, end: 20080101

REACTIONS (4)
  - CHOLECYSTITIS CHRONIC [None]
  - MENTAL DISORDER [None]
  - CHOLELITHIASIS [None]
  - ABDOMINAL PAIN [None]
